FAERS Safety Report 7947197-4 (Version None)
Quarter: 2011Q4

REPORT INFORMATION
  Report Type: 
  Country: None (occurrence: None)
  Receive Date: 20111129
  Receipt Date: 20111116
  Transmission Date: 20120403
  Serious: Yes (Other)
  Sender: FDA-Public Use
  Company Number: US-ASTRAZENECA-2011SE70121

PATIENT
  Age: 52 Year
  Sex: Female

DRUGS (2)
  1. TOPROL-XL [Suspect]
     Route: 048
  2. CRESTOR [Suspect]
     Route: 048

REACTIONS (6)
  - FATIGUE [None]
  - MYOCARDIAL INFARCTION [None]
  - PRESYNCOPE [None]
  - DIZZINESS [None]
  - CHEST PAIN [None]
  - DRUG DOSE OMISSION [None]
